FAERS Safety Report 4277427-4 (Version None)
Quarter: 2004Q1

REPORT INFORMATION
  Report Type: 
  Country: None (occurrence: None)
  Receive Date: 20040122
  Receipt Date: 20031119
  Transmission Date: 20041129
  Serious: Yes (Hospitalization, Disabling)
  Sender: FDA-Public Use
  Company Number: FR-BRISTOL-MYERS SQUIBB COMPANY-12441135

PATIENT
  Age: 69 Year
  Sex: Female

DRUGS (5)
  1. PARAPLATIN [Suspect]
     Indication: LYMPHOMA
     Dosage: 1: 590 MG 03-APR-03  2: 450 MG MAY  3: 410 MG MAY  4: 400 MG JUN  5: 350 MG 07-AUG
     Route: 042
     Dates: start: 20030403, end: 20030807
  2. RITUXIMAB [Suspect]
     Indication: LYMPHOMA
     Route: 042
     Dates: start: 20011210, end: 20031001
  3. ARACYTINE [Concomitant]
     Dates: start: 20030403, end: 20030807
  4. DEXAMETHASONE [Concomitant]
     Dates: start: 20030404, end: 20030808
  5. LEUKINE [Concomitant]
     Dates: start: 20030404, end: 20030404

REACTIONS (4)
  - OPTIC NEUROPATHY [None]
  - PAPILLOEDEMA [None]
  - SCOTOMA [None]
  - VISUAL ACUITY REDUCED [None]
